FAERS Safety Report 25518971 (Version 2)
Quarter: 2025Q3

REPORT INFORMATION
  Report Type: Spontaneous
  Country: CN (occurrence: CN)
  Receive Date: 20250704
  Receipt Date: 20250813
  Transmission Date: 20251021
  Serious: Yes (Hospitalization, Other)
  Sender: COHERUS
  Company Number: CN-SHANGHAI JUNSHI BIOSCIENCES CO., LTD.-CN2025014615

PATIENT

DRUGS (6)
  1. TORIPALIMAB [Suspect]
     Active Substance: TORIPALIMAB
     Indication: Small cell lung cancer
     Dosage: 240 MG, EVERY 21 DAYS
     Route: 041
     Dates: start: 20250527, end: 20250527
  2. TORIPALIMAB [Suspect]
     Active Substance: TORIPALIMAB
     Dosage: 240 MG, EVERY 21 DAYS
     Route: 041
     Dates: start: 20250712, end: 20250712
  3. ETOPOSIDE [Suspect]
     Active Substance: ETOPOSIDE
     Indication: Small cell lung cancer
     Dosage: 100 MG, EVERY 21 DAYS (D1-D5)
     Route: 041
     Dates: start: 20250528, end: 20250601
  4. ETOPOSIDE [Suspect]
     Active Substance: ETOPOSIDE
     Dosage: 100 MG, EVERY 21 DAYS, D1-D5
     Route: 041
     Dates: start: 20250713, end: 20250717
  5. CISPLATIN [Suspect]
     Active Substance: CISPLATIN
     Indication: Small cell lung cancer
     Dosage: 30 MG, EVERY 21 DAYS
     Route: 041
     Dates: start: 20250528, end: 20250531
  6. CISPLATIN [Suspect]
     Active Substance: CISPLATIN
     Dosage: 30 MG, EVERY 21 DAYS, D1-D4
     Route: 041
     Dates: start: 20250713, end: 20250716

REACTIONS (2)
  - Myelosuppression [Unknown]
  - Myelosuppression [Recovered/Resolved]

NARRATIVE: CASE EVENT DATE: 20250618
